FAERS Safety Report 11851911 (Version 1)
Quarter: 2015Q4

REPORT INFORMATION
  Report Type: Spontaneous
  Country: US (occurrence: US)
  Receive Date: 20151218
  Receipt Date: 20151218
  Transmission Date: 20160305
  Serious: Yes (Hospitalization)
  Sender: FDA-Public Use
  Company Number: US-IPCA LABORATORIES LIMITED-IPC201512-000851

PATIENT
  Age: 92 Year
  Sex: Male

DRUGS (5)
  1. WARFARIN [Suspect]
     Active Substance: WARFARIN
     Indication: EMBOLIC STROKE
  2. ENOXAPARIN SODIUM. [Suspect]
     Active Substance: ENOXAPARIN SODIUM
     Indication: EMBOLIC STROKE
  3. ASPIRIN. [Concomitant]
     Active Substance: ASPIRIN
     Indication: EMBOLIC STROKE
  4. ENOXAPARIN SODIUM. [Suspect]
     Active Substance: ENOXAPARIN SODIUM
     Indication: ANTICOAGULANT THERAPY
  5. WARFARIN [Suspect]
     Active Substance: WARFARIN
     Indication: ANTICOAGULANT THERAPY

REACTIONS (4)
  - Muscular weakness [Recovering/Resolving]
  - Muscle haemorrhage [Unknown]
  - International normalised ratio decreased [Unknown]
  - Haemoglobin decreased [Unknown]
